FAERS Safety Report 5471137-3 (Version None)
Quarter: 2007Q3

REPORT INFORMATION
  Report Type: 
  Country: None (occurrence: None)
  Receive Date: 20070928
  Receipt Date: 20070917
  Transmission Date: 20080115
  Serious: Yes (Disabling)
  Sender: FDA-Public Use
  Company Number: GB-ROCHE-519093

PATIENT
  Age: 75 Year
  Sex: Female
  Weight: 76.3 kg

DRUGS (14)
  1. IBANDRONATE SODIUM [Suspect]
     Indication: OSTEOPOROSIS
     Route: 042
     Dates: start: 20060817, end: 20070616
  2. PAMIDRONATE DISODIUM [Suspect]
     Indication: OSTEOPOROSIS
     Dosage: DRUG NAME RPTD AS DISODIUM PAMIDRONATE
     Route: 042
     Dates: start: 20020902, end: 20060307
  3. BUMETANIDE [Concomitant]
  4. CALCIUM [Concomitant]
  5. CODEINE PHOSPHATE [Concomitant]
  6. FLUOXETINE [Concomitant]
  7. GABAPENTIN [Concomitant]
     Route: 048
  8. IMDUR [Concomitant]
  9. NICORANDIL [Concomitant]
  10. RAMIPRIL [Concomitant]
  11. SPIRONOLACTONE [Concomitant]
  12. TEMAZEPAM [Concomitant]
  13. VITAMINE D [Concomitant]
  14. WARFARIN [Concomitant]

REACTIONS (1)
  - OSTEONECROSIS [None]
